FAERS Safety Report 7219660-5 (Version None)
Quarter: 2011Q1

REPORT INFORMATION
  Report Type: 
  Country: None (occurrence: None)
  Receive Date: 20110111
  Receipt Date: 20110107
  Transmission Date: 20110831
  Serious: Yes (Death, Hospitalization)
  Sender: FDA-Public Use
  Company Number: US-BRISTOL-MYERS SQUIBB COMPANY-15376189

PATIENT
  Age: 71 Year
  Sex: Female
  Weight: 55 kg

DRUGS (4)
  1. ERBITUX [Suspect]
     Indication: NON-SMALL CELL LUNG CANCER
     Dosage: LAST ADM ON 01NOV10,NO OF COURSES:14
     Dates: start: 20100809
  2. CARBOPLATIN [Suspect]
     Indication: NON-SMALL CELL LUNG CANCER
     Dosage: LAST ADM ON 25OCT10,2DAYS DELAYED,NO OF COURSES:14
     Dates: start: 20100809
  3. RADIATION THERAPY [Suspect]
     Indication: NON-SMALL CELL LUNG CANCER
     Dosage: 1 DF=74GY,NO OF FRACTIONS: 37;NO OF ELASPSED DAYS:56
     Dates: start: 20100809, end: 20101011
  4. TAXOL [Suspect]
     Indication: NON-SMALL CELL LUNG CANCER
     Dosage: LAST ADM ON 25OCT10,2DAYS DELAYED,NO OF COURSES:14
     Dates: start: 20100809

REACTIONS (2)
  - RADIATION PNEUMONITIS [None]
  - RESPIRATORY FAILURE [None]
